FAERS Safety Report 20005859 (Version 1)
Quarter: 2021Q4

REPORT INFORMATION
  Report Type: Spontaneous
  Country: US (occurrence: US)
  Receive Date: 20211028
  Receipt Date: 20211028
  Transmission Date: 20220304
  Serious: Yes (Hospitalization, Other)
  Sender: FDA-Public Use
  Company Number: US-ELI_LILLY_AND_COMPANY-US202110009218

PATIENT
  Sex: Female

DRUGS (1)
  1. HUMULIN R [Suspect]
     Active Substance: INSULIN HUMAN
     Indication: Product used for unknown indication
     Dosage: UNK UNK, UNKNOWN
     Route: 065

REACTIONS (7)
  - Renal failure [Recovered/Resolved]
  - Procedural pain [Not Recovered/Not Resolved]
  - Hypoglycaemic unconsciousness [Unknown]
  - Blood glucose increased [Unknown]
  - Lower limb fracture [Unknown]
  - Visual impairment [Unknown]
  - Wrong technique in product usage process [Unknown]
